FAERS Safety Report 18745419 (Version 1)
Quarter: 2021Q1

REPORT INFORMATION
  Report Type: Spontaneous
  Country: US (occurrence: US)
  Receive Date: 20210114
  Receipt Date: 20210114
  Transmission Date: 20210419
  Serious: Yes (Hospitalization)
  Sender: FDA-Public Use
  Company Number: None

PATIENT
  Age: 63 Year
  Sex: Female

DRUGS (1)
  1. CAPECITABINE 500 MG NOVADOZ PHARMACEUTICALS [Suspect]
     Active Substance: CAPECITABINE
     Indication: NEOPLASM MALIGNANT
     Dosage: 3?500MG  EVEY MORNING  AND 2?500MG  EVERY EVENING  FOR 14 DAYS ON, THEN 7 DAYS OFF    ??ON HOLD
     Route: 048
     Dates: start: 20200211

REACTIONS (2)
  - Central nervous system lesion [None]
  - Therapy interrupted [None]

NARRATIVE: CASE EVENT DATE: 20201221
